FAERS Safety Report 9602770 (Version 1)
Quarter: 2013Q4

REPORT INFORMATION
  Report Type: Spontaneous
  Country: US (occurrence: US)
  Receive Date: 20131007
  Receipt Date: 20131007
  Transmission Date: 20140711
  Serious: Yes (Hospitalization, Other)
  Sender: FDA-Public Use
  Company Number: PHEH2013US020764

PATIENT
  Sex: Female
  Weight: 60.78 kg

DRUGS (7)
  1. TEKTURNA HCT [Suspect]
     Dosage: 150 MG, QD
     Route: 048
  2. LISINOPRIL [Concomitant]
     Dosage: 20 MG, BID
     Route: 048
  3. ASA [Concomitant]
     Dosage: 81 MG, UNK
  4. CLONIDINE [Concomitant]
     Indication: BLOOD PRESSURE ABNORMAL
     Dosage: UNK UKN, PRN
     Route: 048
  5. VITAMIN B12 [Concomitant]
  6. VITAMIN D3 [Concomitant]
  7. OXYBUTYNIN [Concomitant]
     Indication: INCONTINENCE
     Dosage: 5 MG, BID

REACTIONS (9)
  - Pain [Unknown]
  - Loss of consciousness [Unknown]
  - Gallbladder disorder [Unknown]
  - Transient ischaemic attack [Unknown]
  - Hypotension [Unknown]
  - Abnormal loss of weight [Unknown]
  - Blood pressure increased [Unknown]
  - Malaise [Unknown]
  - Gait disturbance [Unknown]
